FAERS Safety Report 18861078 (Version 2)
Quarter: 2021Q1

REPORT INFORMATION
  Report Type: Report from Study
  Country: BR (occurrence: BR)
  Receive Date: 20210208
  Receipt Date: 20210216
  Transmission Date: 20210420
  Serious: Yes (Other)
  Sender: FDA-Public Use
  Company Number: NVSC2021BR025088

PATIENT
  Age: 61 Year
  Sex: Female

DRUGS (4)
  1. CLONAZEPAM. [Concomitant]
     Active Substance: CLONAZEPAM
     Indication: INSOMNIA
     Dosage: 1 DF (MORE THAN 6 YEARS AGO)
     Route: 048
  2. GALVUS MET [Suspect]
     Active Substance: METFORMIN HYDROCHLORIDE\VILDAGLIPTIN
     Indication: DIABETES MELLITUS
     Dosage: 1 DF, QD (01 TABLET IN THE MORNING)
     Route: 048
  3. DIOVAN HCT [Concomitant]
     Active Substance: HYDROCHLOROTHIAZIDE\VALSARTAN
     Indication: HYPERTENSION
     Dosage: 1 DF, QD (01 TABLET IN THE MORNING)
     Route: 048
  4. BUPIUM [Concomitant]
     Indication: ANXIETY
     Dosage: 1 DF
     Route: 048
     Dates: start: 2020

REACTIONS (5)
  - Memory impairment [Recovered/Resolved]
  - Urinary bladder haemorrhage [Recovered/Resolved]
  - Urinary tract infection [Recovered/Resolved]
  - Bladder cancer [Not Recovered/Not Resolved]
  - Blood glucose increased [Not Recovered/Not Resolved]

NARRATIVE: CASE EVENT DATE: 202003
